FAERS Safety Report 18331256 (Version 3)
Quarter: 2020Q4

REPORT INFORMATION
  Report Type: Report from Study
  Country: US (occurrence: US)
  Receive Date: 20200930
  Receipt Date: 20201125
  Transmission Date: 20210113
  Serious: Yes (Other)
  Sender: FDA-Public Use
  Company Number: US-PFIZER INC-2020368830

PATIENT

DRUGS (2)
  1. GELFOAM [Suspect]
     Active Substance: GELATIN\THROMBIN HUMAN
     Indication: HAEMORRHAGE
     Dosage: UNK, (RECONSTITUTED TO 1000 U/ML)(12 OR100)
  2. THROMBIN [Suspect]
     Active Substance: THROMBIN
     Indication: HAEMORRHAGE
     Dosage: UNK

REACTIONS (1)
  - Leukocytosis [Recovered/Resolved]
